FAERS Safety Report 6690629-2 (Version None)
Quarter: 2010Q2

REPORT INFORMATION
  Report Type: 
  Country: None (occurrence: None)
  Receive Date: 20100421
  Receipt Date: 20100412
  Transmission Date: 20101027
  Serious: Yes (Other)
  Sender: FDA-Public Use
  Company Number: US-JNJFOC-20100403570

PATIENT
  Sex: Female

DRUGS (2)
  1. TOPAMAX [Suspect]
     Indication: MIGRAINE PROPHYLAXIS
     Route: 048
  2. CARDIZEM [Concomitant]
     Indication: BLOOD PRESSURE
     Route: 048

REACTIONS (9)
  - CONTACT LENS INTOLERANCE [None]
  - DRY EYE [None]
  - HYPERTENSION [None]
  - IRIS ATROPHY [None]
  - IRIS DISORDER [None]
  - OCULAR HYPERAEMIA [None]
  - SCLERAL DISCOLOURATION [None]
  - STRESS [None]
  - TREATMENT NONCOMPLIANCE [None]
